FAERS Safety Report 6632503 (Version 3)
Quarter: 2012Q4

REPORT INFORMATION
  Report Type: Report from Study
  Country: ES (occurrence: ES)
  Receive Date: 20080505
  Receipt Date: 20121015
  Transmission Date: 20130627
  Serious: Yes (Death, Life-Threatening, Hospitalization, Other)
  Sender: FDA-Public Use
  Company Number: ES-BRISTOL-MYERS SQUIBB COMPANY-14162507

PATIENT
  Age: 57 Year
  Sex: Female

DRUGS (12)
  1. BELATACEPT [Suspect]
     Indication: RENAL TRANSPLANT
     Dosage: Therapy interrupted on 23-Apr-2008;last infusion on 16-Apr-2008 1 DF= 770 (no units specified)
     Route: 042
     Dates: start: 20080401
  2. MYCOPHENOLATE MOFETIL [Suspect]
     Indication: RENAL TRANSPLANT
     Dosage: Therapy interrupted on 22-Apr-2008

1 DF= 1500 (no units specified)
     Route: 048
     Dates: start: 20080401, end: 20080422
  3. THYMOGLOBULINE [Suspect]
  4. CLORAZEPATE [Concomitant]
     Dates: start: 20080402, end: 20080410
  5. SEPTRIN [Concomitant]
     Dates: start: 20080403, end: 20080422
  6. OMEPRAZOL [Concomitant]
     Dates: start: 20080403, end: 20080410
  7. AMOXICILLIN + CLAVULANATE [Concomitant]
     Dates: start: 20080411, end: 20080420
  8. VALGANCICLOVIR [Concomitant]
     Indication: ANTIVIRAL PROPHYLAXIS
     Dates: start: 20080411, end: 20080420
  9. ASPIRIN [Concomitant]
     Dates: start: 20080412, end: 20080420
  10. FERROUS SULFATE [Concomitant]
     Dates: start: 20080411, end: 20080422
  11. ERYTHROPOIETIN [Concomitant]
  12. ACETYLCYSTEINE [Concomitant]
     Dates: start: 20080403, end: 20080406

REACTIONS (4)
  - Multi-organ failure [Fatal]
  - Respiratory distress [Fatal]
  - Interstitial lung disease [Fatal]
  - Pyrexia [Recovered/Resolved]
